FAERS Safety Report 11109114 (Version 1)
Quarter: 2015Q2

REPORT INFORMATION
  Report Type: Spontaneous
  Country: US (occurrence: None)
  Receive Date: 20150511
  Receipt Date: 20150511
  Transmission Date: 20150821
  Serious: Yes (Disabling)
  Sender: FDA-Public Use
  Company Number: None

PATIENT
  Age: 80 Year
  Sex: Female
  Weight: 60.78 kg

DRUGS (2)
  1. OXYCODONE (GENERIC) 10MG TAB ZYD WALMART PHARMACY [Suspect]
     Active Substance: OXYCODONE
     Indication: CYSTITIS INTERSTITIAL
     Route: 048
     Dates: start: 20150501, end: 20150505
  2. OXYCODONE (GENERIC) 10MG TAB ZYD WALMART PHARMACY [Suspect]
     Active Substance: OXYCODONE
     Indication: BLADDER DISORDER
     Route: 048
     Dates: start: 20150501, end: 20150505

REACTIONS (3)
  - Pain [None]
  - Drug ineffective [None]
  - Product substitution issue [None]

NARRATIVE: CASE EVENT DATE: 20150508
